FAERS Safety Report 6491822-4 (Version None)
Quarter: 2009Q4

REPORT INFORMATION
  Report Type: 
  Country: None (occurrence: None)
  Receive Date: 20091210
  Receipt Date: 20091201
  Transmission Date: 20100525
  Serious: Yes (Hospitalization, Other)
  Sender: FDA-Public Use
  Company Number: 2009SP017682

PATIENT
  Age: 52 Year
  Sex: Female
  Weight: 101.1521 kg

DRUGS (4)
  1. NUVARING [Suspect]
     Indication: CONTRACEPTION
     Dates: start: 20050125, end: 20050524
  2. TETRACYCLINE [Concomitant]
  3. DIOVAN HCT [Concomitant]
  4. WELLBUTRIN [Concomitant]

REACTIONS (7)
  - DEEP VEIN THROMBOSIS [None]
  - DIASTOLIC DYSFUNCTION [None]
  - ELECTROCARDIOGRAM T WAVE ABNORMAL [None]
  - HYPERSENSITIVITY [None]
  - HYPERTENSION [None]
  - PULMONARY EMBOLISM [None]
  - PULMONARY HYPERTENSION [None]
